FAERS Safety Report 12226242 (Version 1)
Quarter: 2016Q1

REPORT INFORMATION
  Report Type: Spontaneous
  Country: ES (occurrence: ES)
  Receive Date: 20160331
  Receipt Date: 20160331
  Transmission Date: 20160526
  Serious: Yes (Hospitalization, Other)
  Sender: FDA-Public Use
  Company Number: CHPA2016ES003895

PATIENT
  Age: 5 Year
  Sex: Male

DRUGS (4)
  1. IBUPROFEN. [Concomitant]
     Active Substance: IBUPROFEN
     Indication: PYREXIA
     Dosage: UNK
     Route: 065
  2. PARACETAMOL [Suspect]
     Active Substance: ACETAMINOPHEN
     Indication: PRODUCT USED FOR UNKNOWN INDICATION
     Dosage: 750 MG, PER DAY
     Route: 065
  3. AZITHROMYCIN ANHYDROUS. [Concomitant]
     Active Substance: AZITHROMYCIN ANHYDROUS
     Indication: PRODUCT USED FOR UNKNOWN INDICATION
     Dosage: UNK, 3 DOSES
     Route: 065
  4. HIDROXIZIN [Concomitant]
     Active Substance: HYDROXYZINE HYDROCHLORIDE
     Indication: PRODUCT USED FOR UNKNOWN INDICATION
     Dosage: UNK, 3 DOSES
     Route: 065

REACTIONS (7)
  - Campylobacter gastroenteritis [Unknown]
  - Tooth erosion [Unknown]
  - Haematochezia [Unknown]
  - Toxic epidermal necrolysis [Unknown]
  - Conjunctivitis [Unknown]
  - Rash pruritic [Unknown]
  - Genital erosion [Unknown]
